FAERS Safety Report 13668476 (Version 1)
Quarter: 2017Q2

REPORT INFORMATION
  Report Type: Spontaneous
  Country: US (occurrence: US)
  Receive Date: 20170620
  Receipt Date: 20170620
  Transmission Date: 20170830
  Serious: Yes (Hospitalization)
  Sender: FDA-Public Use
  Company Number: US-ASTRAZENECA-2017SE62901

PATIENT
  Age: 47 Year
  Sex: Female
  Weight: 63.5 kg

DRUGS (6)
  1. SEROQUEL [Suspect]
     Active Substance: QUETIAPINE FUMARATE
     Indication: DEPRESSION
     Route: 048
     Dates: start: 2006, end: 2012
  2. BABY ASPRIN [Concomitant]
     Active Substance: ASPIRIN
     Indication: PROPHYLAXIS
  3. LAMOTRIGINE. [Concomitant]
     Active Substance: LAMOTRIGINE
     Indication: DEPRESSION
     Route: 065
     Dates: start: 2013
  4. PAXEL [Concomitant]
     Active Substance: PACLITAXEL
     Indication: DEPRESSION
     Route: 065
     Dates: start: 2017
  5. SEROQUEL [Suspect]
     Active Substance: QUETIAPINE FUMARATE
     Indication: DEPRESSION
     Route: 048
     Dates: start: 2012, end: 20161013
  6. XANAX [Concomitant]
     Active Substance: ALPRAZOLAM
     Indication: ANXIETY
     Route: 065
     Dates: start: 2008

REACTIONS (22)
  - Intentional product misuse [Unknown]
  - Bacterial infection [Unknown]
  - Malaise [Unknown]
  - Influenza like illness [Unknown]
  - Dysphagia [Unknown]
  - Eye infection [Unknown]
  - Viral upper respiratory tract infection [Unknown]
  - Palpitations [Unknown]
  - Product use in unapproved indication [Unknown]
  - Diabetes mellitus [Not Recovered/Not Resolved]
  - Choking [Unknown]
  - Pneumonia [Unknown]
  - Blood glucose increased [Unknown]
  - Thyroid disorder [Unknown]
  - Feeding disorder [Unknown]
  - Balance disorder [Unknown]
  - Tremor [Unknown]
  - Nervousness [Unknown]
  - Off label use [Unknown]
  - Anxiety [Unknown]
  - Dyspnoea [Unknown]
  - Nephrolithiasis [Unknown]

NARRATIVE: CASE EVENT DATE: 2011
